FAERS Safety Report 15200589 (Version 1)
Quarter: 2018Q3

REPORT INFORMATION
  Report Type: Report from Study
  Country: US (occurrence: US)
  Receive Date: 20180726
  Receipt Date: 20180726
  Transmission Date: 20181010
  Serious: Yes (Hospitalization, Other)
  Sender: FDA-Public Use
  Company Number: US-BRISTOL-MYERS SQUIBB COMPANY-BMS-2018-067194

PATIENT
  Age: 51 Year
  Sex: Male
  Weight: 63.1 kg

DRUGS (2)
  1. IPILIMUMAB [Suspect]
     Active Substance: IPILIMUMAB
     Indication: TESTIS CANCER
     Dosage: UNK, Q3WK
     Route: 042
     Dates: start: 20180618, end: 20180709
  2. NIVOLUMAB [Suspect]
     Active Substance: NIVOLUMAB
     Indication: TESTIS CANCER
     Dosage: UNK
     Route: 042
     Dates: start: 20180618, end: 20180709

REACTIONS (3)
  - Hypoxia [Unknown]
  - Musculoskeletal pain [Unknown]
  - Dyspnoea [Unknown]

NARRATIVE: CASE EVENT DATE: 20180712
